APPROVED DRUG PRODUCT: DEXTROSE 20% IN PLASTIC CONTAINER
Active Ingredient: DEXTROSE
Strength: 20GM/100ML **Federal Register determination that product was not discontinued or withdrawn for safety or effectiveness reasons**
Dosage Form/Route: INJECTABLE;INJECTION
Application: N017521 | Product #004
Applicant: BAXTER HEALTHCARE CORP
Approved: Approved Prior to Jan 1, 1982 | RLD: Yes | RS: No | Type: DISCN